FAERS Safety Report 25974138 (Version 1)
Quarter: 2025Q4

REPORT INFORMATION
  Report Type: Spontaneous
  Country: US (occurrence: US)
  Receive Date: 20251029
  Receipt Date: 20251029
  Transmission Date: 20260118
  Serious: Yes (Hospitalization, Other)
  Sender: CHATTEM
  Company Number: US-SA-2022SA390939

PATIENT
  Age: 40 Year
  Sex: Female

DRUGS (1)
  1. GOLD BOND ORIGINAL STRENGTH [Suspect]
     Active Substance: MENTHOL
     Indication: Product used for unknown indication
     Dosage: DOSE DESCRIPTION : UNK
     Route: 065

REACTIONS (4)
  - Peritoneal mesothelioma malignant [Unknown]
  - Epithelioid mesothelioma [Unknown]
  - Mesenteric panniculitis [Unknown]
  - Mesenteric neoplasm [Unknown]
